FAERS Safety Report 7790983-4 (Version None)
Quarter: 2011Q4

REPORT INFORMATION
  Report Type: 
  Country: None (occurrence: None)
  Receive Date: 20111002
  Receipt Date: 20110923
  Transmission Date: 20120403
  Serious: Yes (Hospitalization)
  Sender: FDA-Public Use
  Company Number: PHEH2011US05359

PATIENT
  Age: 68 Year
  Sex: Female

DRUGS (2)
  1. TOBI [Suspect]
     Dosage: 300 MG, QD
     Dates: start: 20110803
  2. PREDNISONE [Concomitant]
     Indication: ADRENAL DISORDER
     Dosage: 10 MG, QD

REACTIONS (1)
  - ADRENAL DISORDER [None]
